FAERS Safety Report 20033530 (Version 1)
Quarter: 2021Q4

REPORT INFORMATION
  Report Type: Report from Study
  Country: DE (occurrence: DE)
  Receive Date: 20211104
  Receipt Date: 20211104
  Transmission Date: 20220303
  Serious: Yes (Other)
  Sender: FDA-Public Use
  Company Number: DE-JNJFOC-20211058441

PATIENT

DRUGS (4)
  1. CONCERTA [Suspect]
     Active Substance: METHYLPHENIDATE HYDROCHLORIDE
     Indication: Product used for unknown indication
     Route: 065
  2. TOPAMAX [Suspect]
     Active Substance: TOPIRAMATE
     Indication: Product used for unknown indication
     Route: 065
  3. IBUPROFEN [Suspect]
     Active Substance: IBUPROFEN
     Indication: Product used for unknown indication
     Route: 065
  4. RISPERDAL [Suspect]
     Active Substance: RISPERIDONE
     Indication: Product used for unknown indication
     Route: 065

REACTIONS (23)
  - Cerebral infarction [Unknown]
  - Suicide attempt [Unknown]
  - Seizure [Unknown]
  - Angioedema [Unknown]
  - Leukopenia [Unknown]
  - Vomiting [Unknown]
  - Urticaria [Unknown]
  - Dyspnoea [Unknown]
  - Headache [Unknown]
  - Decreased appetite [Unknown]
  - Tachycardia [Unknown]
  - Tic [Unknown]
  - Intentional overdose [Unknown]
  - Nausea [Unknown]
  - Crying [Unknown]
  - Diarrhoea [Unknown]
  - Eyelid oedema [Unknown]
  - Lip swelling [Unknown]
  - Blood creatine phosphokinase increased [Unknown]
  - Weight decreased [Unknown]
  - Swelling face [Unknown]
  - Off label use [Unknown]
  - Product use issue [Unknown]
